FAERS Safety Report 7633161-1 (Version None)
Quarter: 2011Q3

REPORT INFORMATION
  Report Type: 
  Country: None (occurrence: None)
  Receive Date: 20110725
  Receipt Date: 20110713
  Transmission Date: 20111222
  Serious: Yes (Hospitalization, Other)
  Sender: FDA-Public Use
  Company Number: GB-ROCHE-762985

PATIENT
  Sex: Female
  Weight: 50 kg

DRUGS (8)
  1. BEVACIZUMAB [Suspect]
     Dosage: DATE OF LAST DOSE PRIOR TO SAE: 23 FEBRUARY 2010
     Route: 042
     Dates: start: 20090720
  2. CISPLATIN [Suspect]
     Dosage: DATE OF LAST DOSE PRIOR TO SAE: 23 FEBRUARY 2010
     Route: 042
     Dates: start: 20090720
  3. DOMPERIDONE [Concomitant]
     Route: 048
     Dates: start: 20090720
  4. EPIRUBICIN [Suspect]
     Dosage: DATE OF LAST DOSE PRIOR TO SAE: 23 FEBRUARY 2010
     Route: 042
     Dates: start: 20090720
  5. BISOPROLOL [Concomitant]
     Route: 048
  6. THIAMINE [Concomitant]
     Dosage: DOSE: 1 TABLET DAILY
     Route: 048
  7. VITAMIN B [Concomitant]
     Dosage: DOSE: 2 TABLETS DAILY
     Route: 048
  8. CAPECITABINE [Suspect]
     Dosage: DATE OF LAST DOSE PRIOR TO SAE: 27 FEBRUARY 2010
     Route: 048
     Dates: start: 20090720

REACTIONS (4)
  - PULMONARY EMBOLISM [None]
  - MYOCARDIAL INFARCTION [None]
  - INTRACARDIAC THROMBUS [None]
  - ABDOMINAL PAIN [None]
